FAERS Safety Report 23901609 (Version 1)
Quarter: 2024Q2

REPORT INFORMATION
  Report Type: Spontaneous
  Country: US (occurrence: None)
  Receive Date: 20240526
  Receipt Date: 20240526
  Transmission Date: 20240716
  Serious: No
  Sender: FDA-Public Use
  Company Number: US-ROCHE-3432779

PATIENT
  Sex: Female
  Weight: 39.498 kg

DRUGS (5)
  1. OCREVUS [Suspect]
     Active Substance: OCRELIZUMAB
     Indication: Secondary progressive multiple sclerosis
     Dosage: NO
     Route: 042
     Dates: start: 2018, end: 2020
  2. LEVOTHYROXINE [Concomitant]
     Active Substance: LEVOTHYROXINE\LEVOTHYROXINE SODIUM
  3. LUNESTA [Concomitant]
     Active Substance: ESZOPICLONE
  4. LINZESS [Concomitant]
     Active Substance: LINACLOTIDE
  5. BACLOFEN [Concomitant]
     Active Substance: BACLOFEN

REACTIONS (2)
  - B-lymphocyte count decreased [Unknown]
  - T-lymphocyte count decreased [Recovering/Resolving]
